FAERS Safety Report 5388511-6 (Version None)
Quarter: 2007Q3

REPORT INFORMATION
  Report Type: 
  Country: None (occurrence: None)
  Receive Date: 20070716
  Receipt Date: 20060805
  Transmission Date: 20080115
  Serious: No
  Sender: FDA-Public Use
  Company Number: US-BRISTOL-MYERS SQUIBB COMPANY-13473996

PATIENT
  Age: 2 Year
  Sex: Female

DRUGS (1)
  1. SINEMET CR [Suspect]
     Dosage: 50/200 X 3 OR 150/600 MG

REACTIONS (1)
  - OVERDOSE [None]
